FAERS Safety Report 12060269 (Version 3)
Quarter: 2019Q2

REPORT INFORMATION
  Report Type: Spontaneous
  Country: US (occurrence: US)
  Receive Date: 20160210
  Receipt Date: 20190401
  Transmission Date: 20190711
  Serious: No
  Sender: FDA-Public Use
  Company Number: US-VANDA PHARMACEUTICALS, INC-2015TASUS001027

PATIENT
  Age: 39 Year
  Sex: Female

DRUGS (2)
  1. HETLIOZ [Suspect]
     Active Substance: TASIMELTEON
     Indication: CENTRAL-ALVEOLAR HYPOVENTILATION
     Dosage: 20 MG, EVERY 24 HOURS
     Route: 048
     Dates: start: 20151116, end: 20151216
  2. HETLIOZ [Suspect]
     Active Substance: TASIMELTEON
     Indication: CIRCADIAN RHYTHM SLEEP DISORDER

REACTIONS (4)
  - Product use in unapproved indication [Unknown]
  - Decreased appetite [Unknown]
  - Anxiety [Recovered/Resolved]
  - Insomnia [Unknown]

NARRATIVE: CASE EVENT DATE: 2015
